FAERS Safety Report 25471901 (Version 1)
Quarter: 2025Q2

REPORT INFORMATION
  Report Type: Spontaneous
  Country: GB (occurrence: GB)
  Receive Date: 20250624
  Receipt Date: 20250624
  Transmission Date: 20250717
  Serious: Yes (Other)
  Sender: AUROBINDO
  Company Number: GB-MHRA-MED-202506090137451260-VYKSZ

PATIENT
  Age: 56 Year
  Sex: Male
  Weight: 111 kg

DRUGS (2)
  1. PREDNISOLONE [Suspect]
     Active Substance: PREDNISOLONE
     Indication: Hypoacusis
     Dosage: 40 MILLIGRAM, ONCE A DAY (IN THE MORNING )
     Route: 065
     Dates: start: 20250605, end: 20250608
  2. RAMIPRIL [Concomitant]
     Active Substance: RAMIPRIL
     Indication: Hypertension
     Route: 065
     Dates: start: 20240124

REACTIONS (2)
  - Extrasystoles [Not Recovered/Not Resolved]
  - Gastrooesophageal reflux disease [Not Recovered/Not Resolved]
